FAERS Safety Report 13153690 (Version 2)
Quarter: 2017Q1

REPORT INFORMATION
  Report Type: Spontaneous
  Country: JP (occurrence: JP)
  Receive Date: 20170126
  Receipt Date: 20170210
  Transmission Date: 20170428
  Serious: Yes (Hospitalization)
  Sender: FDA-Public Use
  Company Number: JP-GLAXOSMITHKLINE-JP2016JPN182300

PATIENT
  Age: 46 Year
  Sex: Male

DRUGS (5)
  1. YERVOY [Suspect]
     Active Substance: IPILIMUMAB
     Dosage: 180 MG, ONCE IN EVERY 3 WEEKS
     Route: 041
     Dates: start: 20160809, end: 20161019
  2. BONALON [Concomitant]
     Active Substance: ALENDRONATE SODIUM
     Dosage: 35 MG, WE
     Route: 048
     Dates: start: 20160926, end: 20170116
  3. SAMITREL [Suspect]
     Active Substance: ATOVAQUONE
     Indication: ANTIFUNGAL PROPHYLAXIS
     Dosage: 1500 MG, QD
     Route: 048
     Dates: start: 20161025, end: 20161209
  4. PREDONINE TABLETS [Concomitant]
     Dosage: 20 MG, QD
     Route: 048
     Dates: start: 20160822
  5. TAKEPRON OD TABLETS [Concomitant]
     Dosage: 15 MG, QD
     Route: 048
     Dates: start: 20160923

REACTIONS (1)
  - Liver disorder [Recovering/Resolving]

NARRATIVE: CASE EVENT DATE: 20161128
